FAERS Safety Report 6711883-4 (Version None)
Quarter: 2010Q2

REPORT INFORMATION
  Report Type: 
  Country: None (occurrence: None)
  Receive Date: 20100505
  Receipt Date: 20100423
  Transmission Date: 20101027
  Serious: Yes (Hospitalization, Other)
  Sender: FDA-Public Use
  Company Number: JP-JNJFOC-20100401897

PATIENT
  Sex: Female

DRUGS (8)
  1. CRAVIT [Suspect]
     Indication: UPPER RESPIRATORY TRACT INFLAMMATION
     Dosage: 200 MG TWICE A DAY
     Route: 048
  2. CAFFEINE/SALICYLAMIDE/PARACETAMOL/ PROMETHAZINE METHYLENE SALICYLAMIDE [Suspect]
     Indication: UPPER RESPIRATORY TRACT INFLAMMATION
     Route: 048
     Dates: start: 20071018, end: 20071028
  3. COLDRIN [Suspect]
     Indication: UPPER RESPIRATORY TRACT INFLAMMATION
     Route: 048
     Dates: start: 20071018, end: 20071028
  4. KLARICID [Suspect]
     Indication: UPPER RESPIRATORY TRACT INFLAMMATION
     Route: 048
     Dates: start: 20071018, end: 20071023
  5. HUSCODE [Suspect]
     Indication: UPPER RESPIRATORY TRACT INFLAMMATION
     Route: 048
     Dates: start: 20071024, end: 20071028
  6. MUCODYNE [Suspect]
     Indication: UPPER RESPIRATORY TRACT INFLAMMATION
     Route: 048
     Dates: start: 20071024, end: 20071028
  7. THYRADIN S [Concomitant]
     Indication: THYROID CANCER
     Route: 048
  8. LENDORMIN D [Concomitant]
     Indication: INSOMNIA
     Route: 048

REACTIONS (2)
  - RHABDOMYOLYSIS [None]
  - STEVENS-JOHNSON SYNDROME [None]
